FAERS Safety Report 15016328 (Version 1)
Quarter: 2018Q2

REPORT INFORMATION
  Report Type: Spontaneous
  Country: GB (occurrence: GB)
  Receive Date: 20180615
  Receipt Date: 20180615
  Transmission Date: 20180711
  Serious: Yes (Other)
  Sender: FDA-Public Use
  Company Number: GB-AMGEN-GBRCT2018078752

PATIENT
  Age: 74 Year
  Sex: Female

DRUGS (2)
  1. PROLIA [Suspect]
     Active Substance: DENOSUMAB
     Indication: PRODUCT USED FOR UNKNOWN INDICATION
     Dosage: UNK
     Route: 065
  2. TERIPARATIDE [Suspect]
     Active Substance: TERIPARATIDE
     Indication: OSTEOPOROSIS
     Dosage: 20 MCG, DAILY
     Route: 058
     Dates: start: 20170712

REACTIONS (7)
  - Mobility decreased [Unknown]
  - Back pain [Unknown]
  - Gait disturbance [Unknown]
  - Muscle spasms [Unknown]
  - Intestinal haemorrhage [Unknown]
  - Musculoskeletal stiffness [Unknown]
  - Diverticulitis [Unknown]

NARRATIVE: CASE EVENT DATE: 20180513
